FAERS Safety Report 13837502 (Version 2)
Quarter: 2017Q3

REPORT INFORMATION
  Report Type: Report from Study
  Country: FR (occurrence: FR)
  Receive Date: 20170804
  Receipt Date: 20170828
  Transmission Date: 20171127
  Serious: Yes (Death, Hospitalization)
  Sender: FDA-Public Use
  Company Number: FR-SEATTLE GENETICS-2017SGN01874

PATIENT
  Age: 66 Year
  Sex: Male
  Weight: 80 kg

DRUGS (2)
  1. BRENTUXIMAB VEDOTIN [Suspect]
     Active Substance: BRENTUXIMAB VEDOTIN
     Indication: HODGKIN^S DISEASE
     Dosage: 96 MG, UNK
     Route: 042
     Dates: start: 20170717, end: 20170717
  2. BENDAMUSTINE HYDROCHLORIDE. [Suspect]
     Active Substance: BENDAMUSTINE HYDROCHLORIDE
     Indication: HODGKIN^S DISEASE
     Dosage: 174.42 MG, UNK
     Route: 042
     Dates: start: 20170717, end: 20170718

REACTIONS (3)
  - Multiple organ dysfunction syndrome [Fatal]
  - Cytomegalovirus infection [Fatal]
  - Pyrexia [Fatal]

NARRATIVE: CASE EVENT DATE: 20170725
